FAERS Safety Report 9669498 (Version 2)
Quarter: 2013Q4

REPORT INFORMATION
  Report Type: Spontaneous
  Country: HU (occurrence: HU)
  Receive Date: 20131105
  Receipt Date: 20131111
  Transmission Date: 20140711
  Serious: Yes (Other)
  Sender: FDA-Public Use
  Company Number: HU-TEVA-439710ISR

PATIENT
  Age: 28 Year
  Sex: Female

DRUGS (2)
  1. SALBUTAMOL [Suspect]
     Indication: ASTHMA
     Dates: start: 2010, end: 201304
  2. FLUTICASONE [Suspect]
     Indication: ASTHMA
     Dosage: 500 MICROGRAM DAILY;
     Dates: start: 2010, end: 201304

REACTIONS (1)
  - Candida infection [Recovered/Resolved]
